FAERS Safety Report 20967279 (Version 1)
Quarter: 2022Q2

REPORT INFORMATION
  Report Type: Spontaneous
  Country: US (occurrence: US)
  Receive Date: 20220616
  Receipt Date: 20220616
  Transmission Date: 20220720
  Serious: Yes (Hospitalization, Other)
  Sender: FDA-Public Use
  Company Number: US-SLATE RUN PHARMACEUTICALS-22US001146

PATIENT

DRUGS (10)
  1. VORICONAZOLE [Suspect]
     Active Substance: VORICONAZOLE
     Indication: Aspergillus infection
     Dosage: 550 MILLIGRAM, BID
  2. VORICONAZOLE [Suspect]
     Active Substance: VORICONAZOLE
     Dosage: UNK, DOSE ADJUSTMENT
  3. VORICONAZOLE [Suspect]
     Active Substance: VORICONAZOLE
     Dosage: 300 MILLIGRAM, BID
  4. VORICONAZOLE [Suspect]
     Active Substance: VORICONAZOLE
     Dosage: 400 MILLIGRAM, 2 ONLY
  5. RUXOLITINIB [Concomitant]
     Active Substance: RUXOLITINIB
     Indication: Immunosuppression
     Dosage: 5 MILLIGRAM, BID
  6. TACROLIMUS [Concomitant]
     Active Substance: TACROLIMUS
     Indication: Immunosuppression
     Dosage: 1 MILLIGRAM, BID
  7. PREDNISONE [Concomitant]
     Active Substance: PREDNISONE
     Indication: Immunosuppression
     Dosage: 10 MILLIGRAM, QD
  8. FOSCARNET [Concomitant]
     Active Substance: FOSCARNET
     Indication: Cytomegalovirus infection
  9. ISAVUCONAZOLE [Concomitant]
     Active Substance: ISAVUCONAZOLE
     Indication: Prophylaxis
     Dosage: 372 MILLIGRAM, QD
  10. TERBINAFINE [Concomitant]
     Active Substance: TERBINAFINE
     Indication: Aspergillus test
     Dosage: 500 MILLIGRAM, BID

REACTIONS (6)
  - Septic embolus [Recovering/Resolving]
  - Encephalitis fungal [Recovering/Resolving]
  - Drug level below therapeutic [Unknown]
  - Lung infiltration [Unknown]
  - Cardiac valve vegetation [Unknown]
  - Endocarditis enterococcal [Unknown]
